FAERS Safety Report 4436182-5 (Version None)
Quarter: 2004Q3

REPORT INFORMATION
  Report Type: 
  Country: None (occurrence: None)
  Receive Date: 20040830
  Receipt Date: 20040506
  Transmission Date: 20050211
  Serious: Yes (Other)
  Sender: FDA-Public Use
  Company Number: US-BRISTOL-MYERS SQUIBB COMPANY-12581336

PATIENT
  Sex: Male

DRUGS (2)
  1. ERBITUX [Suspect]
     Dosage: PATIENT ON 2ND OF 3RD TREATMENTS
  2. IRINOTECAN [Concomitant]
     Dosage: PATIENT ON 2ND OF 3RD TREATMENTS

REACTIONS (4)
  - DEHYDRATION [None]
  - DIARRHOEA [None]
  - RASH [None]
  - WEIGHT DECREASED [None]
